FAERS Safety Report 9554105 (Version 1)
Quarter: 2013Q3

REPORT INFORMATION
  Report Type: Spontaneous
  Country: US (occurrence: US)
  Receive Date: 20130925
  Receipt Date: 20130925
  Transmission Date: 20140515
  Serious: Yes (Other)
  Sender: FDA-Public Use
  Company Number: US-ASTRAZENECA-2013SE69682

PATIENT
  Sex: Female

DRUGS (8)
  1. SYMBICORT [Suspect]
     Indication: CHRONIC OBSTRUCTIVE PULMONARY DISEASE
     Dosage: 1 PUFF, TWO TIMES A DAY
     Route: 055
  2. SYMBICORT [Suspect]
     Indication: ASTHMA
     Dosage: 1 PUFF, TWO TIMES A DAY
     Route: 055
  3. SYMBICORT [Suspect]
     Indication: CHRONIC OBSTRUCTIVE PULMONARY DISEASE
     Dosage: ONCE DAILY
     Route: 055
  4. SYMBICORT [Suspect]
     Indication: ASTHMA
     Dosage: ONCE DAILY
     Route: 055
  5. SPIRIVA [Suspect]
     Indication: INHALATION THERAPY
     Dosage: ONCE DAILY
  6. ALBUTEROL [Concomitant]
     Indication: INHALATION THERAPY
     Dosage: NEBULIZER TREATMENT 3 TO 4 TIMES DAILY
  7. IPRATROPIUM [Concomitant]
     Indication: INHALATION THERAPY
     Dosage: NEBULIZER TREATMENT 3 TO 4 TIMES DAILY
  8. COMBIVENT [Concomitant]
     Indication: INHALATION THERAPY

REACTIONS (7)
  - Bladder prolapse [Unknown]
  - Urinary retention [Not Recovered/Not Resolved]
  - Asthma [Not Recovered/Not Resolved]
  - Intraocular pressure increased [Not Recovered/Not Resolved]
  - Eye disorder [Unknown]
  - Cognitive disorder [Unknown]
  - Off label use [Not Recovered/Not Resolved]
